FAERS Safety Report 18942493 (Version 2)
Quarter: 2021Q1

REPORT INFORMATION
  Report Type: Report from Study
  Country: None (occurrence: IL)
  Receive Date: 20210225
  Receipt Date: 20210305
  Transmission Date: 20210420
  Serious: Yes (Hospitalization)
  Sender: FDA-Public Use
  Company Number: IL-ABBVIE-21P-082-3755303-00

PATIENT
  Age: 71 Year
  Sex: Male
  Weight: 68 kg

DRUGS (8)
  1. VENETOCLAX. [Suspect]
     Active Substance: VENETOCLAX
     Indication: MYELODYSPLASTIC SYNDROME
     Dosage: 14 DAY ON, 14 DAYS OFF
     Route: 048
     Dates: start: 20210110, end: 20210216
  2. AZACITIDINE. [Suspect]
     Active Substance: AZACITIDINE
     Indication: MYELODYSPLASTIC SYNDROME
     Dosage: 7 DAYS WITHIN THE FIRST 9 CALENDAR DAYS OF EACH CYCLE (28 DAY CYCLE)
     Route: 058
     Dates: start: 20210110, end: 20210113
  3. AZACITIDINE. [Suspect]
     Active Substance: AZACITIDINE
     Dosage: 7 DAYS WITHIN THE FIRST 9 CALENDAR DAYS OF EACH CYCLE (28 DAY CYCLE)
     Route: 042
     Dates: start: 20210214, end: 20210215
  4. PREDNISONE. [Concomitant]
     Active Substance: PREDNISONE
     Indication: MYELODYSPLASTIC SYNDROME
     Route: 048
     Dates: start: 202008
  5. DUODART [Concomitant]
     Active Substance: DUTASTERIDE\TAMSULOSIN
     Indication: DYSURIA
     Route: 048
     Dates: start: 2018
  6. AZACITIDINE. [Suspect]
     Active Substance: AZACITIDINE
     Dosage: 7 DAYS WITHIN THE FIRST 9 CALENDAR DAYS OF EACH CYCLE (28 DAY CYCLE)
     Route: 042
     Dates: start: 20210114, end: 20210118
  7. LIQUID OPTALGIN [Concomitant]
     Indication: EYE PAIN
  8. LIQUID OPTALGIN [Concomitant]
     Indication: HEADACHE
     Route: 048
     Dates: start: 20210130, end: 20210131

REACTIONS (5)
  - Fungal tracheitis [Recovered/Resolved]
  - Neutropenia [Recovered/Resolved]
  - Neutrophil count decreased [Recovered/Resolved]
  - Cellulitis orbital [Recovered/Resolved]
  - Pyrexia [Recovered/Resolved]

NARRATIVE: CASE EVENT DATE: 20210131
